FAERS Safety Report 24573566 (Version 1)
Quarter: 2024Q4

REPORT INFORMATION
  Report Type: Spontaneous
  Country: US (occurrence: US)
  Receive Date: 20241102
  Receipt Date: 20241102
  Transmission Date: 20250115
  Serious: No
  Sender: HILL DERMACEUTICALS, INC.
  Company Number: US-Hill Dermaceuticals, Inc.-2164265

PATIENT
  Age: 80 Year
  Sex: Female

DRUGS (2)
  1. TOLAK [Suspect]
     Active Substance: FLUOROURACIL
     Indication: Precancerous skin lesion
     Dates: start: 20240226, end: 20240302
  2. CALAMINE [Concomitant]
     Active Substance: CALAMINE\FERRIC OXIDE RED\ZINC OXIDE

REACTIONS (4)
  - Feeling hot [Not Recovered/Not Resolved]
  - Cellulitis [Not Recovered/Not Resolved]
  - Swelling [Not Recovered/Not Resolved]
  - Pain [Not Recovered/Not Resolved]

NARRATIVE: CASE EVENT DATE: 20240303
